FAERS Safety Report 6716186-X (Version None)
Quarter: 2010Q2

REPORT INFORMATION
  Report Type: 
  Country: None (occurrence: None)
  Receive Date: 20100507
  Receipt Date: 20100503
  Transmission Date: 20101027
  Serious: Yes (Other)
  Sender: FDA-Public Use
  Company Number: US-AMGEN-QUU408193

PATIENT
  Sex: Female

DRUGS (5)
  1. NPLATE [Suspect]
     Indication: IDIOPATHIC THROMBOCYTOPENIC PURPURA
     Dates: start: 20090130, end: 20090421
  2. UNSPECIFIED THYROID MEDICATION [Concomitant]
  3. IMMU-G [Concomitant]
     Dates: start: 20090101
  4. RITUXIMAB [Concomitant]
     Dates: start: 20020101
  5. CALCIUM [Concomitant]

REACTIONS (1)
  - INTERSTITIAL LUNG DISEASE [None]
